FAERS Safety Report 11321423 (Version 1)
Quarter: 2015Q3

REPORT INFORMATION
  Report Type: Spontaneous
  Country: US (occurrence: US)
  Receive Date: 20150729
  Receipt Date: 20150729
  Transmission Date: 20151125
  Serious: No
  Sender: FDA-Public Use
  Company Number: US-ENDO PHARMACEUTICALS INC.-201409140

PATIENT
  Age: 67 Year
  Sex: Male
  Weight: 120.31 kg

DRUGS (7)
  1. ZYRTEC [Concomitant]
     Active Substance: CETIRIZINE HYDROCHLORIDE
  2. TESTOPEL [Suspect]
     Active Substance: TESTOSTERONE
     Indication: BLOOD TESTOSTERONE DECREASED
     Dosage: 10 PELLETS
     Route: 058
     Dates: start: 20140827
  3. PROSCAR [Concomitant]
     Active Substance: FINASTERIDE
  4. BABY ASPIRIN [Concomitant]
     Active Substance: ASPIRIN
  5. LIPITOR [Concomitant]
     Active Substance: ATORVASTATIN CALCIUM
  6. AMLODIPINE [Concomitant]
     Active Substance: AMLODIPINE BESYLATE
  7. ATACAND [Concomitant]
     Active Substance: CANDESARTAN CILEXETIL

REACTIONS (2)
  - Device dislocation [Unknown]
  - Overdose [Unknown]

NARRATIVE: CASE EVENT DATE: 20140827
